FAERS Safety Report 7326545-2 (Version None)
Quarter: 2011Q1

REPORT INFORMATION
  Report Type: 
  Country: None (occurrence: None)
  Receive Date: 20110302
  Receipt Date: 20110216
  Transmission Date: 20110831
  Serious: Yes (Other)
  Sender: FDA-Public Use
  Company Number: US-BAYER-201042038NA

PATIENT
  Sex: Female
  Weight: 72.562 kg

DRUGS (5)
  1. YAZ [Suspect]
     Indication: CONTRACEPTION
     Dosage: UNK
     Route: 048
     Dates: start: 20080901, end: 20090801
  2. FLUOXETINE [Concomitant]
  3. TETRACYCLINE [Concomitant]
  4. YAZ [Suspect]
     Indication: PREMENSTRUAL SYNDROME
  5. MOTRIN [Concomitant]
     Dosage: UNK UNK, PRN

REACTIONS (6)
  - ANXIETY [None]
  - PAIN IN EXTREMITY [None]
  - DEPRESSION [None]
  - OEDEMA PERIPHERAL [None]
  - STRESS [None]
  - DEEP VEIN THROMBOSIS [None]
